FAERS Safety Report 9258194 (Version 1)
Quarter: 2013Q2

REPORT INFORMATION
  Report Type: Spontaneous
  Country: US (occurrence: US)
  Receive Date: 20130426
  Receipt Date: 20130426
  Transmission Date: 20140414
  Serious: Yes (Hospitalization)
  Sender: FDA-Public Use
  Company Number: US-BAYER-2013-050783

PATIENT
  Age: 28 Year
  Sex: Female
  Weight: 51.7 kg

DRUGS (8)
  1. YASMIN [Suspect]
  2. SYNTHROID [Concomitant]
     Dosage: 25 ?G, UNK
     Dates: start: 20051202
  3. ARMOUR THYROID [Concomitant]
     Indication: HYPOTHYROIDISM
     Dosage: 15 MG, QD
     Route: 048
     Dates: start: 20060104, end: 20060213
  4. WELLBUTRIN [Concomitant]
     Indication: DEPRESSION
     Dosage: 2 DF, DAILY
     Dates: start: 20060104
  5. WELLBUTRIN [Concomitant]
     Indication: DEPRESSION
     Dosage: 300 MG, UNK
     Route: 048
     Dates: start: 20060213
  6. ADDERALL [Concomitant]
     Indication: ATTENTION DEFICIT/HYPERACTIVITY DISORDER
     Dosage: 50 MG, DAILY
     Dates: start: 20060105
  7. ADDERALL [Concomitant]
     Indication: ATTENTION DEFICIT/HYPERACTIVITY DISORDER
     Dosage: 10-50 MG THROUGHOUT DAY
     Dates: start: 20060213
  8. ASPIRIN [Concomitant]

REACTIONS (3)
  - Deep vein thrombosis [Recovered/Resolved]
  - Pulmonary embolism [Recovered/Resolved]
  - Thrombophlebitis superficial [Recovered/Resolved]
